FAERS Safety Report 15351962 (Version 1)
Quarter: 2018Q3

REPORT INFORMATION
  Report Type: Spontaneous
  Country: ZA (occurrence: ZA)
  Receive Date: 20180905
  Receipt Date: 20180905
  Transmission Date: 20181010
  Serious: Yes (Hospitalization, Other)
  Sender: FDA-Public Use
  Company Number: ZA-PFIZER INC-2018355323

PATIENT
  Age: 61 Year
  Sex: Male

DRUGS (6)
  1. ZUVAMOR [Suspect]
     Active Substance: ROSUVASTATIN
     Dosage: 20 MG, UNK
  2. VENLOR [Suspect]
     Active Substance: VENLAFAXINE HYDROCHLORIDE
     Dosage: 75 MG, UNK
  3. LASIX?R [Suspect]
     Active Substance: FUROSEMIDE\RESERPINE
     Dosage: 60 MG, UNK
  4. PURICOS [Suspect]
     Active Substance: ALLOPURINOL
     Dosage: 300 MG, UNK
  5. LYRICA [Suspect]
     Active Substance: PREGABALIN
     Dosage: 75 MG, UNK
  6. LASIX [Suspect]
     Active Substance: FUROSEMIDE
     Dosage: 80 MG, UNK

REACTIONS (1)
  - Chronic kidney disease [Unknown]
